FAERS Safety Report 20019419 (Version 1)
Quarter: 2021Q4

REPORT INFORMATION
  Report Type: Spontaneous
  Country: US (occurrence: US)
  Receive Date: 20211101
  Receipt Date: 20211101
  Transmission Date: 20220303
  Serious: Yes (Death, Life-Threatening, Hospitalization, Other)
  Sender: FDA-Public Use
  Company Number: US-AMGEN-USASP2021162724

PATIENT
  Age: 46 Year
  Sex: Female

DRUGS (3)
  1. RITUXIMAB [Suspect]
     Active Substance: RITUXIMAB
     Indication: Immunosuppression
     Dosage: UNK
     Route: 065
  2. RITUXIMAB [Suspect]
     Active Substance: RITUXIMAB
     Indication: Off label use
  3. TACROLIMUS [Concomitant]
     Active Substance: TACROLIMUS
     Dosage: UNK

REACTIONS (13)
  - Multiple organ dysfunction syndrome [Fatal]
  - Septic shock [Unknown]
  - Liver function test abnormal [Unknown]
  - Metabolic acidosis [Unknown]
  - Encephalopathy [Unknown]
  - Acute respiratory failure [Unknown]
  - Haemophagocytic lymphohistiocytosis [Unknown]
  - Post transplant lymphoproliferative disorder [Unknown]
  - Clostridium difficile colitis [Unknown]
  - Epstein-Barr viraemia [Unknown]
  - Mental status changes [Unknown]
  - Acute kidney injury [Unknown]
  - Off label use [Unknown]
